FAERS Safety Report 17560261 (Version 1)
Quarter: 2020Q1

REPORT INFORMATION
  Report Type: Spontaneous
  Country: JP (occurrence: JP)
  Receive Date: 20200319
  Receipt Date: 20200319
  Transmission Date: 20200409
  Serious: Yes (Other)
  Sender: FDA-Public Use
  Company Number: JP-ADVANZ PHARMA-202003001629

PATIENT

DRUGS (2)
  1. HYDROXYCHLOROQUINE SULFATE (AUTHORIZED GENERIC),PLAQUENIL [Suspect]
     Active Substance: HYDROXYCHLOROQUINE SULFATE
     Indication: SYSTEMIC LUPUS ERYTHEMATOSUS
     Dosage: UNK
     Route: 048
  2. HYDROXYCHLOROQUINE SULFATE (AUTHORIZED GENERIC),PLAQUENIL [Suspect]
     Active Substance: HYDROXYCHLOROQUINE SULFATE
     Dosage: UNK, RESUMPTION
     Route: 048

REACTIONS (6)
  - Glossodynia [Unknown]
  - Hangnail [Unknown]
  - Sjogren^s syndrome [Unknown]
  - Stomatitis [Unknown]
  - Nail avulsion [Unknown]
  - Onychoclasis [Unknown]

NARRATIVE: CASE EVENT DATE: 2019
